FAERS Safety Report 8908655 (Version 1)
Quarter: 2012Q4

REPORT INFORMATION
  Report Type: 
  Country: US (occurrence: US)
  Receive Date: 20121114
  Receipt Date: 20121114
  Transmission Date: 20130627
  Serious: No
  Sender: FDA-Public Use
  Company Number: US-MYLANLABS-2012S1003173

PATIENT
  Age: 50 Year
  Sex: Male

DRUGS (1)
  1. ATENOLOL + CHLORTALIDONE [Suspect]
     Indication: BLOOD PRESSURE INCREASED

REACTIONS (3)
  - Drug ineffective [Unknown]
  - Hypertension [Unknown]
  - Renal cyst [Unknown]
